FAERS Safety Report 11237980 (Version 1)
Quarter: 2015Q3

REPORT INFORMATION
  Report Type: Report from Study
  Country: US (occurrence: US)
  Receive Date: 20150703
  Receipt Date: 20150703
  Transmission Date: 20151125
  Serious: Yes (Hospitalization, Other)
  Sender: FDA-Public Use
  Company Number: US-AMGEN-USASL2015064472

PATIENT
  Age: 57 Year
  Sex: Female
  Weight: 49.7 kg

DRUGS (9)
  1. ALBUMIN HUMAN [Concomitant]
     Active Substance: ALBUMIN (HUMAN)
     Dosage: 100 ML, UNK
     Route: 051
     Dates: start: 20150424, end: 20150425
  2. MAXIPIME [Concomitant]
     Active Substance: CEFEPIME HYDROCHLORIDE
     Dosage: 0.5 G, UNK (200ML/HR), EVERY 24 HOURS
     Route: 042
     Dates: start: 20150428, end: 20150504
  3. PROTONIX                           /01263204/ [Concomitant]
     Dosage: 20 MG, UNK
     Route: 048
     Dates: start: 20150425, end: 20150504
  4. CEPACOL                            /00283001/ [Concomitant]
     Dosage: UNK UNK, AS NECESSARY
     Dates: start: 20150424, end: 20150504
  5. HUMULIN R [Concomitant]
     Active Substance: INSULIN HUMAN
     Dosage: 10 UNIT/0.1ML, EVERY 2 HOURS
     Route: 042
     Dates: start: 20150427, end: 20150427
  6. MAALOX PLUS EXTRA STRENGTH [Concomitant]
     Dosage: 30 ML, AS NECESSARY
     Route: 048
     Dates: start: 20150424, end: 20150504
  7. PROCRIT [Suspect]
     Active Substance: ERYTHROPOIETIN
     Indication: PRODUCT USED FOR UNKNOWN INDICATION
     Dosage: UNK
     Route: 065
  8. NORMAL SALINE [Concomitant]
     Active Substance: SODIUM CHLORIDE
     Dosage: 1X3ML (0.9%) SYRINGE, TWICE A DAY
     Route: 042
     Dates: start: 20150424, end: 20150504
  9. PREDNISONE. [Concomitant]
     Active Substance: PREDNISONE
     Indication: CHRONIC KIDNEY DISEASE
     Dosage: 5 MG, ONCE A DAY
     Route: 048
     Dates: start: 20150424, end: 20150504

REACTIONS (12)
  - Osteomyelitis [Unknown]
  - Diabetes mellitus [Unknown]
  - Rheumatoid arthritis [Unknown]
  - Hospitalisation [Unknown]
  - Chronic kidney disease [Unknown]
  - Pancytopenia [Unknown]
  - Abscess limb [Unknown]
  - Neutropenia [Unknown]
  - Anaemia [Unknown]
  - Cellulitis [Unknown]
  - Hypothyroidism [Unknown]
  - Chronic lymphocytic leukaemia [Unknown]

NARRATIVE: CASE EVENT DATE: 20150401
